FAERS Safety Report 17457159 (Version 1)
Quarter: 2020Q1

REPORT INFORMATION
  Report Type: Spontaneous
  Country: US (occurrence: US)
  Receive Date: 20200225
  Receipt Date: 20200225
  Transmission Date: 20200409
  Serious: Yes (Other)
  Sender: FDA-Public Use
  Company Number: US-MYLANLABS-2020M1019783

PATIENT
  Sex: Female

DRUGS (1)
  1. VIVARIN [Suspect]
     Active Substance: CAFFEINE
     Indication: POOR QUALITY SLEEP
     Dosage: 2 DOSAGE FORM, BID (ONE IN MORNING AND ONE IN AFTERNOON)
     Route: 048

REACTIONS (1)
  - Hospitalisation [Unknown]
